FAERS Safety Report 4549458-8 (Version None)
Quarter: 2005Q1

REPORT INFORMATION
  Report Type: 
  Country: None (occurrence: None)
  Receive Date: 20050107
  Receipt Date: 20050107
  Transmission Date: 20050727
  Serious: No
  Sender: FDA-Public Use
  Company Number: None

PATIENT
  Age: 69 Year
  Sex: Male
  Weight: 60.782 kg

DRUGS (1)
  1. TAXOL [Suspect]
     Dosage: IMPLANTED
     Dates: start: 20041112

REACTIONS (3)
  - CHEST PAIN [None]
  - POST PROCEDURAL COMPLICATION [None]
  - STENT OCCLUSION [None]
